FAERS Safety Report 8316871-2 (Version None)
Quarter: 2012Q2

REPORT INFORMATION
  Report Type: 
  Country: None (occurrence: None)
  Receive Date: 20120427
  Receipt Date: 20120424
  Transmission Date: 20120825
  Serious: No
  Sender: FDA-Public Use
  Company Number: PHEH2012US008767

PATIENT
  Sex: Female

DRUGS (12)
  1. MONOPRIL [Concomitant]
  2. CRESTOR [Concomitant]
  3. SYNTHROID [Concomitant]
  4. WELLBUTRIN [Concomitant]
  5. VALTREX [Concomitant]
  6. XANAX [Concomitant]
  7. ENPRESSE [Concomitant]
  8. GLUMETZA [Concomitant]
  9. MULTIVITAMIN [Concomitant]
  10. TASIGNA [Suspect]
     Dosage: 300 MG, BID
     Route: 048
  11. LUNESTA [Concomitant]
  12. VITAMIN B-12 [Concomitant]

REACTIONS (3)
  - FATIGUE [None]
  - DEHYDRATION [None]
  - RASH GENERALISED [None]
